FAERS Safety Report 8501691-6 (Version None)
Quarter: 2012Q3

REPORT INFORMATION
  Report Type: 
  Country: None (occurrence: None)
  Receive Date: 20120711
  Receipt Date: 20120706
  Transmission Date: 20120928
  Serious: No
  Sender: FDA-Public Use
  Company Number: US-BIOGENIDEC-2012BI000971

PATIENT
  Age: 57 Year
  Sex: Male

DRUGS (3)
  1. TYSABRI [Suspect]
     Indication: MULTIPLE SCLEROSIS
     Route: 042
     Dates: start: 20111205, end: 20120531
  2. ACETAMINOPHEN [Concomitant]
     Indication: PREMEDICATION
     Route: 048
  3. BENADRYL [Concomitant]
     Indication: PREMEDICATION

REACTIONS (3)
  - ASTHENIA [None]
  - FATIGUE [None]
  - HYPERSENSITIVITY [None]
